FAERS Safety Report 18095911 (Version 1)
Quarter: 2020Q3

REPORT INFORMATION
  Report Type: Report from Study
  Country: GB (occurrence: GB)
  Receive Date: 20200731
  Receipt Date: 20200731
  Transmission Date: 20201103
  Serious: Yes (Hospitalization)
  Sender: FDA-Public Use
  Company Number: GB-ROCHE-2650853

PATIENT
  Age: 71 Year
  Sex: Male
  Weight: 79.8 kg

DRUGS (6)
  1. BEVACIZUMAB. [Suspect]
     Active Substance: BEVACIZUMAB
     Indication: PLEURAL MESOTHELIOMA MALIGNANT
     Dosage: DATE OF LAST DOSE ADMINISTERED BEFORE SAE: 09/JUN/2020
     Route: 042
     Dates: start: 20191120
  2. CARBOPLATIN. [Suspect]
     Active Substance: CARBOPLATIN
     Indication: PLEURAL MESOTHELIOMA MALIGNANT
     Dosage: DATE OF LAST DOSE ADMINISTERED: 05/FEB/2020
     Route: 042
     Dates: start: 20191120
  3. OMEPRAZOLE. [Concomitant]
     Active Substance: OMEPRAZOLE
  4. ATEZOLIZUMAB. [Suspect]
     Active Substance: ATEZOLIZUMAB
     Indication: PLEURAL MESOTHELIOMA MALIGNANT
     Dosage: DATE OF LAST DOSE ADMINISTERED BEFORE SAE: 09/JUN/2020
     Route: 042
     Dates: start: 20191120
  5. PEMETREXED. [Suspect]
     Active Substance: PEMETREXED
     Indication: PLEURAL MESOTHELIOMA MALIGNANT
     Dosage: DATE OF LAST DOSE ADMINISTERED: 05/FEB/2020
     Route: 042
     Dates: start: 20191120
  6. PREDNISOLONE. [Concomitant]
     Active Substance: PREDNISOLONE

REACTIONS (1)
  - Acute kidney injury [Recovered/Resolved with Sequelae]

NARRATIVE: CASE EVENT DATE: 20200712
